FAERS Safety Report 21906745 (Version 2)
Quarter: 2023Q2

REPORT INFORMATION
  Report Type: Spontaneous
  Country: RU (occurrence: RU)
  Receive Date: 20230125
  Receipt Date: 20230404
  Transmission Date: 20230722
  Serious: Yes (Other)
  Sender: FDA-Public Use
  Company Number: RU-SA-2023SA021559

PATIENT
  Sex: Male

DRUGS (4)
  1. PRALUENT [Suspect]
     Active Substance: ALIROCUMAB
     Indication: Product used for unknown indication
     Dosage: 75 MG
  2. PRALUENT [Suspect]
     Active Substance: ALIROCUMAB
     Dosage: 150 UNK
  3. PRALUENT [Suspect]
     Active Substance: ALIROCUMAB
     Dosage: UNK
  4. PRALUENT [Suspect]
     Active Substance: ALIROCUMAB
     Dosage: UNK

REACTIONS (4)
  - Seizure [Recovered/Resolved]
  - Dyspnoea [Recovered/Resolved]
  - Weight increased [Recovered/Resolved]
  - Drug ineffective [Unknown]
